FAERS Safety Report 9831184 (Version 2)
Quarter: 2014Q1

REPORT INFORMATION
  Report Type: Spontaneous
  Country: US (occurrence: US)
  Receive Date: 20140121
  Receipt Date: 20140217
  Transmission Date: 20141002
  Serious: Yes (Other)
  Sender: FDA-Public Use
  Company Number: US-JNJFOC-20140102735

PATIENT
  Sex: Male
  Weight: 99.79 kg

DRUGS (1)
  1. TUCKS MEDICATED PADS [Suspect]
     Indication: HAEMORRHOIDS
     Dosage: FOR MANY YEARS
     Route: 061

REACTIONS (5)
  - Foreign body [Recovered/Resolved]
  - Furuncle [Recovering/Resolving]
  - Discomfort [Recovering/Resolving]
  - Procedural pain [Recovering/Resolving]
  - Product quality issue [Unknown]
